FAERS Safety Report 6519215-1 (Version None)
Quarter: 2009Q4

REPORT INFORMATION
  Report Type: 
  Country: None (occurrence: None)
  Receive Date: 20091228
  Receipt Date: 20091214
  Transmission Date: 20100525
  Serious: Yes (Other)
  Sender: FDA-Public Use
  Company Number: PHHY2009JP55594

PATIENT
  Age: 77 Year
  Sex: Male
  Weight: 52 kg

DRUGS (14)
  1. TEGRETOL [Suspect]
     Indication: FACIAL NEURALGIA
     Dosage: 1 DF, BID
     Route: 048
     Dates: start: 20091030, end: 20091030
  2. SILECE [Suspect]
     Indication: INSOMNIA
     Dosage: 0.5 TABLET DAILY
     Route: 048
     Dates: start: 20091030
  3. ZADITEN [Concomitant]
     Indication: ASTHMA
     Dosage: 2 MG, UNK
     Route: 048
  4. TAKEPRON [Concomitant]
     Route: 048
  5. TAMSULOSIN HYDROCHLORIDE [Concomitant]
     Route: 048
  6. TOWAMIN [Concomitant]
     Indication: CARDIAC FAILURE CHRONIC
     Route: 048
  7. OLMETEC [Concomitant]
     Indication: CARDIAC FAILURE CHRONIC
     Route: 048
  8. PLAVIX [Concomitant]
     Indication: CEREBRAL INFARCTION
     Route: 048
  9. DIGOXIN [Concomitant]
     Indication: CARDIAC FAILURE CHRONIC
     Route: 048
  10. NIKORANMART [Concomitant]
     Indication: CARDIAC FAILURE CHRONIC
     Route: 048
  11. ANPLAG [Concomitant]
     Route: 048
  12. PIMOBENDAN [Concomitant]
     Indication: CARDIAC FAILURE CHRONIC
     Route: 048
  13. PREDONINE [Concomitant]
     Indication: CARDIAC FAILURE CHRONIC
     Route: 048
  14. THEO-DUR [Concomitant]
     Indication: ASTHMA
     Route: 048

REACTIONS (8)
  - BODY TEMPERATURE INCREASED [None]
  - C-REACTIVE PROTEIN INCREASED [None]
  - FLUSHING [None]
  - OXYGEN SATURATION DECREASED [None]
  - TOXIC SKIN ERUPTION [None]
  - URINARY TRACT INFECTION [None]
  - VOMITING [None]
  - WHITE BLOOD CELL COUNT INCREASED [None]
